FAERS Safety Report 11140136 (Version 1)
Quarter: 2015Q2

REPORT INFORMATION
  Report Type: Spontaneous
  Country: US (occurrence: US)
  Receive Date: 20150527
  Receipt Date: 20150527
  Transmission Date: 20150821
  Serious: Yes (Other)
  Sender: FDA-Public Use
  Company Number: US-TEVA-564567USA

PATIENT
  Sex: Female

DRUGS (3)
  1. CLARAVIS [Suspect]
     Active Substance: ISOTRETINOIN
     Indication: ACNE
     Route: 065
     Dates: start: 20150501
  2. MOTRIN [Suspect]
     Active Substance: IBUPROFEN
     Route: 065
  3. TYLENOL [Suspect]
     Active Substance: ACETAMINOPHEN
     Route: 065

REACTIONS (13)
  - Chest discomfort [Unknown]
  - Fatigue [Unknown]
  - Ocular hyperaemia [Unknown]
  - Headache [Unknown]
  - Ocular discomfort [Unknown]
  - Feeling of body temperature change [Unknown]
  - Ocular icterus [Unknown]
  - Head discomfort [Unknown]
  - Asthenia [Unknown]
  - Lip dry [Unknown]
  - Dry skin [Unknown]
  - Insomnia [Unknown]
  - Feeling hot [Unknown]
